FAERS Safety Report 8292743 (Version 10)
Quarter: 2014Q2

REPORT INFORMATION
  Report Type: Report from Study
  Country: CA (occurrence: CA)
  Receive Date: 20111215
  Receipt Date: 20140609
  Transmission Date: 20141212
  Serious: Yes (Hospitalization, Other)
  Sender: FDA-Public Use
  Company Number: CA-ROCHE-1019887

PATIENT
  Age: 56 Year
  Sex: Female
  Weight: 81.6 kg

DRUGS (17)
  1. RITUXAN [Suspect]
     Indication: RHEUMATOID ARTHRITIS
     Route: 042
     Dates: start: 20090209
  2. RITUXAN [Suspect]
     Route: 042
     Dates: start: 20130530
  3. PREDNISONE [Suspect]
     Indication: PRODUCT USED FOR UNKNOWN INDICATION
     Route: 065
  4. SOTALOL [Suspect]
     Indication: HYPERTENSION
     Route: 065
  5. ZOPLICONE (UNK INGREDIENTS) [Concomitant]
     Route: 065
  6. DEPOMEDRONE [Concomitant]
     Route: 065
  7. VITAMIN B12 [Concomitant]
     Route: 065
  8. SOTALOL [Concomitant]
     Route: 065
  9. LORAZEPAM [Concomitant]
     Route: 065
  10. RABEPRAZOLE [Concomitant]
     Route: 065
  11. GLICLAZIDE [Concomitant]
     Route: 065
  12. METFORMIN [Concomitant]
     Route: 065
  13. ATORVASTATIN [Concomitant]
     Route: 065
  14. DIPHENHYDRAMINE HCL [Concomitant]
     Indication: PREMEDICATION
     Route: 048
     Dates: start: 20100301
  15. ACETAMINOPHEN [Concomitant]
     Indication: PREMEDICATION
     Route: 048
     Dates: start: 20100301
  16. METHYLPREDNISOLONE [Concomitant]
     Indication: PREMEDICATION
     Route: 042
     Dates: start: 20100301
  17. ASA [Concomitant]

REACTIONS (23)
  - Cough [Unknown]
  - Respiratory tract congestion [Not Recovered/Not Resolved]
  - Herpes zoster [Unknown]
  - Arrhythmia [Unknown]
  - Weight increased [Unknown]
  - Drug ineffective [Unknown]
  - Diabetic complication [Unknown]
  - Lower respiratory tract infection [Unknown]
  - Pain [Not Recovered/Not Resolved]
  - Vulvovaginal pruritus [Not Recovered/Not Resolved]
  - Fatigue [Not Recovered/Not Resolved]
  - Vulvovaginal dryness [Not Recovered/Not Resolved]
  - Peripheral swelling [Recovered/Resolved]
  - Malaise [Not Recovered/Not Resolved]
  - Fatigue [Not Recovered/Not Resolved]
  - Dry mouth [Recovered/Resolved]
  - Dry throat [Recovered/Resolved]
  - Eye swelling [Recovered/Resolved]
  - Nausea [Recovering/Resolving]
  - Hypoaesthesia [Recovering/Resolving]
  - Heart rate decreased [Unknown]
  - Arthralgia [Unknown]
  - Drug effect decreased [Unknown]
